FAERS Safety Report 5389824-4 (Version None)
Quarter: 2007Q3

REPORT INFORMATION
  Report Type: 
  Country: None (occurrence: None)
  Receive Date: 20070716
  Receipt Date: 20070124
  Transmission Date: 20080115
  Serious: Yes (Hospitalization)
  Sender: FDA-Public Use
  Company Number: MPS1-10642

PATIENT
  Age: 3 Year
  Sex: Male

DRUGS (2)
  1. ALDURAZYME [Suspect]
     Indication: MUCOPOLYSACCHARIDOSIS I
     Dosage: 1.2 M/KG QWK, IV
     Route: 042
     Dates: start: 20050308, end: 20050901
  2. ALDURAZYME [Suspect]
     Indication: MUCOPOLYSACCHARIDOSIS I
     Dosage: 0.58 MG/KG QWK, IV
     Route: 042
     Dates: start: 20050101

REACTIONS (4)
  - ANAESTHETIC COMPLICATION PULMONARY [None]
  - EAR INFECTION [None]
  - RESPIRATORY FAILURE [None]
  - SINUSITIS [None]
